FAERS Safety Report 19842065 (Version 10)
Quarter: 2022Q3

REPORT INFORMATION
  Report Type: Report from Study
  Country: CN (occurrence: None)
  Receive Date: 20210915
  Receipt Date: 20220810
  Transmission Date: 20221026
  Serious: Yes (Hospitalization)
  Sender: FDA-Public Use
  Company Number: CN-ROCHE-2906425

PATIENT
  Age: 75 Year
  Sex: Male
  Weight: 53.5 kg

DRUGS (13)
  1. BEVACIZUMAB [Suspect]
     Active Substance: BEVACIZUMAB
     Indication: Small cell lung cancer extensive stage
     Dosage: 05/AUG/2021 MOST RECENT DOSE OF BEVACIZUMAB/PLACEBO PRIOR TO AE ONSET?DOSE OF LAST BEVACIZUMAB/PLACE
     Route: 042
     Dates: start: 20210325
  2. ATEZOLIZUMAB [Suspect]
     Active Substance: ATEZOLIZUMAB
     Indication: Small cell lung cancer extensive stage
     Dosage: 05/AUG/2021 MOST RECENT DOSE OF ATEZOLIZUMAB PRIOR TO AE ONSET
     Route: 041
     Dates: start: 20210325
  3. CARBOPLATIN [Suspect]
     Active Substance: CARBOPLATIN
     Indication: Small cell lung cancer extensive stage
     Dosage: DATE OF MOST RECENT DOSE OF CARBOPLATIN PRIOR TO AE/SAE ONSET:01/JUN/2021
     Route: 042
     Dates: start: 20210325
  4. ETOPOSIDE [Suspect]
     Active Substance: ETOPOSIDE
     Indication: Small cell lung cancer extensive stage
     Dosage: DATE OF MOST RECENT DOSE OF ETOPOSIDE PRIOR TO AE/SAE ONSET:03/JUN/2021?DATE OF MOST RECENT DOSE OF
     Route: 042
     Dates: start: 20210325
  5. LANSOPRAZOLE [Concomitant]
     Active Substance: LANSOPRAZOLE
     Route: 042
     Dates: start: 20210325, end: 20210327
  6. LANSOPRAZOLE [Concomitant]
     Active Substance: LANSOPRAZOLE
     Route: 042
     Dates: start: 20210416, end: 20210416
  7. LANSOPRAZOLE [Concomitant]
     Active Substance: LANSOPRAZOLE
     Route: 042
     Dates: start: 20210510, end: 20210510
  8. ILAPRAZOLE [Concomitant]
     Active Substance: ILAPRAZOLE
     Route: 048
     Dates: start: 20210509, end: 20210513
  9. ILAPRAZOLE [Concomitant]
     Active Substance: ILAPRAZOLE
     Route: 048
     Dates: start: 20210601, end: 20210611
  10. DOMPERIDONE [Concomitant]
     Active Substance: DOMPERIDONE
     Route: 048
     Dates: start: 20210601, end: 20210601
  11. MEGESTROL ACETATE [Concomitant]
     Active Substance: MEGESTROL ACETATE
     Dates: start: 20210601, end: 20210611
  12. HEPARIN SODIUM [Concomitant]
     Active Substance: HEPARIN SODIUM
     Dates: start: 20210913, end: 20210922
  13. SERUM ALBUMIN [Concomitant]
     Dates: start: 20210913, end: 20210917

REACTIONS (1)
  - Impaired gastric emptying [Not Recovered/Not Resolved]

NARRATIVE: CASE EVENT DATE: 20210825
